FAERS Safety Report 5291996-7 (Version None)
Quarter: 2007Q2

REPORT INFORMATION
  Report Type: 
  Country: None (occurrence: None)
  Receive Date: 20070406
  Receipt Date: 20070406
  Transmission Date: 20071010
  Serious: Yes (Hospitalization)
  Sender: FDA-Public Use
  Company Number: None

PATIENT
  Sex: Female

DRUGS (3)
  1. CETUXIMAB [Suspect]
     Indication: PANCREATIC CARCINOMA
     Dosage: IV
     Route: 042
     Dates: start: 20070205
  2. OXALIPLATIN [Suspect]
     Indication: PANCREATIC CARCINOMA
     Dosage: IV
     Route: 042
     Dates: start: 20070205
  3. GEMCITABINE HCL [Suspect]

REACTIONS (3)
  - CYANOSIS [None]
  - DEEP VEIN THROMBOSIS [None]
  - HEPARIN-INDUCED THROMBOCYTOPENIA [None]
